FAERS Safety Report 10508718 (Version 1)
Quarter: 2014Q3

REPORT INFORMATION
  Report Type: Spontaneous
  Country: US (occurrence: None)
  Receive Date: 20140915
  Receipt Date: 20140915
  Transmission Date: 20150326
  Serious: Yes (Other)
  Sender: FDA-Public Use
  Company Number: JPI-P-034812

PATIENT
  Age: 35 Year
  Sex: Female
  Weight: 88.6 kg

DRUGS (4)
  1. ALPRAZOLAM. [Concomitant]
     Active Substance: ALPRAZOLAM
  2. METHYLPHENIDATE [Concomitant]
     Active Substance: METHYLPHENIDATE
  3. XYREM [Suspect]
     Active Substance: SODIUM OXYBATE
     Indication: NARCOLEPSY
     Route: 048
     Dates: start: 20130816, end: 20130819
  4. PAROXETINE [Concomitant]
     Active Substance: PAROXETINE\PAROXETINE HYDROCHLORIDE

REACTIONS (5)
  - Depression [None]
  - Insomnia [None]
  - Condition aggravated [None]
  - Euphoric mood [None]
  - Movement disorder [None]

NARRATIVE: CASE EVENT DATE: 201308
